FAERS Safety Report 4516134-7 (Version None)
Quarter: 2004Q4

REPORT INFORMATION
  Report Type: 
  Country: None (occurrence: None)
  Receive Date: 20041129
  Receipt Date: 20041109
  Transmission Date: 20050328
  Serious: Yes (Death)
  Sender: FDA-Public Use
  Company Number: B0351009A

PATIENT
  Age: 37 Year
  Sex: Male

DRUGS (4)
  1. EPIVIR [Suspect]
  2. LOPINAVIR + RITONAVIR (LOPINAVIR + RITONAVIR) [Suspect]
  3. INDINAVIR SULFATE (INDINAVIR SULFATE) [Suspect]
  4. TENOFOVIR DISOPROXIL FUMA (TENOFOVIR DISOPROXIL FUMA) [Concomitant]

REACTIONS (6)
  - ANGIOCENTRIC LYMPHOMA [None]
  - ASTHENIA [None]
  - BRAIN COMPRESSION [None]
  - CEREBRAL TOXOPLASMOSIS [None]
  - GRAND MAL CONVULSION [None]
  - HEADACHE [None]
